FAERS Safety Report 4683021-3 (Version None)
Quarter: 2005Q2

REPORT INFORMATION
  Report Type: 
  Country: None (occurrence: None)
  Receive Date: 20050606
  Receipt Date: 20050310
  Transmission Date: 20051028
  Serious: Yes (Hospitalization)
  Sender: FDA-Public Use
  Company Number: US-MERCK-0503USA02298

PATIENT
  Age: 68 Year
  Sex: Female
  Weight: 105 kg

DRUGS (30)
  1. PREVACID [Concomitant]
     Route: 065
  2. ATACAND [Concomitant]
     Route: 065
  3. ALLEGRA [Concomitant]
     Indication: HYPERSENSITIVITY
     Route: 065
  4. ALLEGRA [Concomitant]
     Indication: SINUSITIS
     Route: 065
  5. LASIX [Concomitant]
     Route: 048
  6. POTASSIUM CHLORIDE [Concomitant]
     Route: 065
  7. NITROGLYCERIN [Concomitant]
     Route: 060
  8. VITAMIN E [Concomitant]
     Route: 065
  9. ECOTRIN [Concomitant]
     Route: 065
  10. TUMS [Concomitant]
     Indication: HIATUS HERNIA
     Route: 065
  11. BEXTRA [Concomitant]
     Route: 065
  12. PROTONIX [Concomitant]
     Route: 065
  13. SEREVENT [Concomitant]
     Route: 065
  14. EPA CAPSULES [Concomitant]
     Route: 065
  15. MAGNESIUM (UNSPECIFIED) [Concomitant]
     Route: 065
  16. VITAMIN B COMPLEX [Concomitant]
     Route: 065
  17. VIOXX [Suspect]
     Indication: OSTEOARTHRITIS
     Route: 048
     Dates: start: 20000901, end: 20041001
  18. VIOXX [Suspect]
     Route: 048
     Dates: start: 20000901, end: 20041001
  19. VIOXX [Suspect]
     Indication: PAIN
     Route: 048
     Dates: start: 20000901, end: 20041001
  20. VIOXX [Suspect]
     Route: 048
     Dates: start: 20000901, end: 20041001
  21. LIPITOR [Concomitant]
     Indication: BLOOD CHOLESTEROL INCREASED
     Route: 065
     Dates: start: 19980601
  22. CELEBREX [Concomitant]
     Route: 065
     Dates: start: 19990101, end: 20000101
  23. COUMADIN [Concomitant]
     Indication: THROMBOSIS
     Route: 065
     Dates: start: 20020301
  24. ASPIRIN [Concomitant]
     Route: 065
     Dates: start: 20020301
  25. MOTRIN [Concomitant]
     Indication: OSTEOARTHRITIS
     Route: 065
  26. CALCIUM (UNSPECIFIED) [Concomitant]
     Route: 065
  27. LORTAB [Concomitant]
     Indication: ARTHRALGIA
     Route: 065
  28. POTASSIUM (UNSPECIFIED) [Concomitant]
     Route: 065
  29. DARVOCET-N 100 [Concomitant]
     Route: 065
  30. VITAMINS (UNSPECIFIED) [Concomitant]
     Route: 065

REACTIONS (35)
  - ALLERGIC SINUSITIS [None]
  - ARRHYTHMIA [None]
  - ASTHENIA [None]
  - BACK PAIN [None]
  - BENIGN NEOPLASM OF THYROID GLAND [None]
  - BLOOD CHOLESTEROL INCREASED [None]
  - BLOOD GLUCOSE INCREASED [None]
  - BLOOD TRIGLYCERIDES INCREASED [None]
  - CATARACT OPERATION [None]
  - CEREBROVASCULAR ACCIDENT [None]
  - CHEST PAIN [None]
  - COUGH [None]
  - DIABETES MELLITUS [None]
  - DIFFICULTY IN WALKING [None]
  - DIZZINESS [None]
  - DYSPHAGIA [None]
  - DYSPNOEA [None]
  - EMOTIONAL DISTRESS [None]
  - FATIGUE [None]
  - GLYCOSYLATED HAEMOGLOBIN INCREASED [None]
  - HEPATIC STEATOSIS [None]
  - HEPATOMEGALY [None]
  - HYPERTENSION [None]
  - INFARCTION [None]
  - INTERVERTEBRAL DISC PROTRUSION [None]
  - OEDEMA PERIPHERAL [None]
  - PANCREAS LIPOMATOSIS [None]
  - PULMONARY EMBOLISM [None]
  - ROTATOR CUFF REPAIR [None]
  - SCOLIOSIS [None]
  - SPONDYLITIS [None]
  - STRESS [None]
  - THROMBOSIS [None]
  - UPPER RESPIRATORY TRACT INFECTION [None]
  - WEIGHT DECREASED [None]
